FAERS Safety Report 15999741 (Version 2)
Quarter: 2022Q3

REPORT INFORMATION
  Report Type: Spontaneous
  Country: US (occurrence: US)
  Receive Date: 20190225
  Receipt Date: 20220808
  Transmission Date: 20221027
  Serious: Yes (Other)
  Sender: FDA-Public Use
  Company Number: US-PFIZER INC-2019081304

PATIENT
  Age: 81 Year
  Sex: Female

DRUGS (1)
  1. XELJANZ XR [Suspect]
     Active Substance: TOFACITINIB CITRATE
     Dosage: 11 MG, UNK (X30)
     Dates: start: 201702

REACTIONS (3)
  - Neoplasm malignant [Unknown]
  - Dementia [Unknown]
  - Tinea infection [Unknown]

NARRATIVE: CASE EVENT DATE: 20170214
